FAERS Safety Report 7574166-9 (Version None)
Quarter: 2011Q2

REPORT INFORMATION
  Report Type: 
  Country: None (occurrence: None)
  Receive Date: 20110627
  Receipt Date: 20110608
  Transmission Date: 20111010
  Serious: Yes (Hospitalization, Disabling, Other)
  Sender: FDA-Public Use
  Company Number: US-BAYER-2011-050149

PATIENT
  Age: 81 Year
  Sex: Male
  Weight: 57 kg

DRUGS (5)
  1. ASPIRIN [Suspect]
     Indication: ANTICOAGULANT THERAPY
     Dosage: 81 MG, QD / COUNT SIZE NOT SPECIFIED
     Route: 048
     Dates: start: 20100101, end: 20110101
  2. ASPIRIN [Suspect]
     Indication: ANTICOAGULANT THERAPY
     Dosage: 325 MG, QD
     Route: 048
     Dates: start: 20110501
  3. PLAVIX [Concomitant]
     Dosage: UNK
     Dates: start: 20100101, end: 20110101
  4. ASPIRIN [Suspect]
     Dosage: 162 MG DAILY / COUNT SIZE NOT SPECIFIED
     Route: 048
     Dates: start: 20110101
  5. MOBIC [Concomitant]
     Indication: ARTHROPATHY
     Dosage: UNK
     Dates: start: 20110201

REACTIONS (10)
  - URINARY TRACT INFECTION [None]
  - ABASIA [None]
  - NEUROTOXICITY [None]
  - RECTAL HAEMORRHAGE [None]
  - FALL [None]
  - HEAD INJURY [None]
  - CEREBRAL HAEMORRHAGE [None]
  - DUODENAL ULCER [None]
  - APHAGIA [None]
  - HAEMATEMESIS [None]
